FAERS Safety Report 19586925 (Version 1)
Quarter: 2021Q3

REPORT INFORMATION
  Report Type: Spontaneous
  Country: US (occurrence: US)
  Receive Date: 20210720
  Receipt Date: 20210720
  Transmission Date: 20211014
  Serious: No
  Sender: FDA-Public Use
  Company Number: US-BAXTER-2021BAX021660

PATIENT

DRUGS (1)
  1. CIPROFLOXACIN INJECTION WITH 5% DEXTROSE INJECTION, USP [Suspect]
     Active Substance: CIPROFLOXACIN
     Indication: PRODUCT USED FOR UNKNOWN INDICATION
     Route: 065
     Dates: end: 20210713

REACTIONS (2)
  - Infusion site reaction [Unknown]
  - Angiopathy [Unknown]

NARRATIVE: CASE EVENT DATE: 20210713
